FAERS Safety Report 24679817 (Version 1)
Quarter: 2024Q4

REPORT INFORMATION
  Report Type: Spontaneous
  Country: PL (occurrence: PL)
  Receive Date: 20241129
  Receipt Date: 20241129
  Transmission Date: 20250114
  Serious: Yes (Other)
  Sender: AMGEN
  Company Number: PL-AMGEN-POLSP2024231141

PATIENT
  Age: 38 Year
  Sex: Female

DRUGS (5)
  1. PANITUMUMAB [Suspect]
     Active Substance: PANITUMUMAB
     Indication: Adenocarcinoma of colon
     Dosage: UNK
     Route: 065
     Dates: start: 20210826
  2. NEULASTA [Suspect]
     Active Substance: PEGFILGRASTIM
     Indication: Product used for unknown indication
     Dosage: UNK
     Route: 065
     Dates: start: 2022
  3. LEUCOVORIN [Suspect]
     Active Substance: LEUCOVORIN\LEUCOVORIN CALCIUM
     Indication: Adenocarcinoma of colon
     Dosage: UNK
     Route: 065
     Dates: start: 20210826, end: 2022
  4. FLUOROURACIL [Suspect]
     Active Substance: FLUOROURACIL
     Indication: Adenocarcinoma of colon
     Dosage: UNK
     Route: 065
     Dates: start: 20210826, end: 2022
  5. OXALIPLATIN [Suspect]
     Active Substance: OXALIPLATIN
     Indication: Adenocarcinoma of colon
     Dosage: UNK
     Route: 065
     Dates: start: 20210826, end: 2022

REACTIONS (6)
  - Leukopenia [Not Recovered/Not Resolved]
  - Anaemia [Unknown]
  - Lacrimation increased [Unknown]
  - Therapy partial responder [Recovered/Resolved]
  - Hypomagnesaemia [Unknown]
  - Skin toxicity [Unknown]

NARRATIVE: CASE EVENT DATE: 20220101
